FAERS Safety Report 22632599 (Version 3)
Quarter: 2024Q1

REPORT INFORMATION
  Report Type: Spontaneous
  Country: GB (occurrence: GB)
  Receive Date: 20230623
  Receipt Date: 20240106
  Transmission Date: 20240409
  Serious: Yes (Hospitalization, Other)
  Sender: FDA-Public Use
  Company Number: GB-ROCHE-3346437

PATIENT
  Age: 75 Year
  Weight: 114.2 kg

DRUGS (3)
  1. LENALIDOMIDE [Suspect]
     Active Substance: LENALIDOMIDE
     Indication: Follicular lymphoma
     Dosage: 15 MILLIGRAM, ONCE A DAY
     Route: 048
     Dates: start: 20220615, end: 20220705
  2. RITUXIMAB [Suspect]
     Active Substance: RITUXIMAB
     Indication: Follicular lymphoma
     Dosage: UNK
     Route: 065
     Dates: start: 20210824, end: 20211119
  3. RITUXIMAB [Suspect]
     Active Substance: RITUXIMAB
     Dosage: 1400 MILLIGRAM 8 WEEKS  (ONCE IN 3 WEEKS) (DATE OF LAST ADMINISTRATION PRIOR TO EVENT WAS 10/AUG/202
     Route: 058
     Dates: start: 20220615

REACTIONS (5)
  - Cellulitis [Recovered/Resolved]
  - Neutropenic sepsis [Recovered/Resolved]
  - Pneumonia [Recovered/Resolved]
  - Left ventricular failure [Recovered/Resolved]
  - Pleural effusion [Recovered/Resolved]

NARRATIVE: CASE EVENT DATE: 20211201
